FAERS Safety Report 9995163 (Version 1)
Quarter: 2014Q1

REPORT INFORMATION
  Report Type: Spontaneous
  Country: GB (occurrence: GB)
  Receive Date: 20140311
  Receipt Date: 20140311
  Transmission Date: 20141002
  Serious: Yes (Hospitalization)
  Sender: FDA-Public Use
  Company Number: GB-TEVA-466533ISR

PATIENT
  Age: 75 Year
  Sex: Male

DRUGS (6)
  1. FUROSEMIDE [Suspect]
     Indication: HYPERTENSION
     Dosage: 80 MILLIGRAM DAILY; IN THE MORNING
     Route: 048
     Dates: end: 20140206
  2. LOSARTAN [Suspect]
     Indication: HYPERTENSION
     Dosage: 50 MILLIGRAM DAILY;
     Route: 048
     Dates: end: 20140206
  3. BISOPROLOL [Concomitant]
  4. CODEINE [Concomitant]
  5. PARACETAMOL [Concomitant]
  6. SIMVASTATIN [Concomitant]

REACTIONS (2)
  - Renal failure acute [Recovering/Resolving]
  - Condition aggravated [Unknown]
